FAERS Safety Report 20553060 (Version 1)
Quarter: 2022Q1

REPORT INFORMATION
  Report Type: Spontaneous
  Country: CN (occurrence: None)
  Receive Date: 20220304
  Receipt Date: 20220304
  Transmission Date: 20220424
  Serious: Yes (Other)
  Sender: FDA-Public Use
  Company Number: 2022A095438

PATIENT
  Age: 26435 Day
  Sex: Female
  Weight: 72.8 kg

DRUGS (1)
  1. BRILINTA [Suspect]
     Active Substance: TICAGRELOR
     Indication: Platelet aggregation inhibition
     Route: 048
     Dates: start: 20220215, end: 20220218

REACTIONS (2)
  - Chest discomfort [Recovering/Resolving]
  - Vascular stenosis [Unknown]

NARRATIVE: CASE EVENT DATE: 20220216
